FAERS Safety Report 14345919 (Version 1)
Quarter: 2018Q1

REPORT INFORMATION
  Report Type: Report from Study
  Country: CA (occurrence: CA)
  Receive Date: 20180103
  Receipt Date: 20180103
  Transmission Date: 20180509
  Serious: Yes (Hospitalization)
  Sender: FDA-Public Use
  Company Number: CA-AMGEN-CANSL2017191714

PATIENT
  Age: 76 Year
  Sex: Female

DRUGS (1)
  1. XGEVA [Suspect]
     Active Substance: DENOSUMAB
     Indication: BREAST CANCER
     Dosage: 120 MG//1.7ML
     Route: 065
     Dates: start: 20171101

REACTIONS (2)
  - Malaise [Unknown]
  - Terminal state [Unknown]

NARRATIVE: CASE EVENT DATE: 2017
